FAERS Safety Report 15883965 (Version 2)
Quarter: 2019Q1

REPORT INFORMATION
  Report Type: Report from Study
  Country: PK (occurrence: PK)
  Receive Date: 20190129
  Receipt Date: 20190204
  Transmission Date: 20190417
  Serious: Yes (Death, Hospitalization)
  Sender: FDA-Public Use
  Company Number: PHHY2019PK019041

PATIENT
  Sex: Male
  Weight: 54 kg

DRUGS (1)
  1. TASIGNA [Suspect]
     Active Substance: NILOTINIB
     Indication: CHRONIC MYELOID LEUKAEMIA
     Dosage: 600 MG, QD (2 DF IN MORNING AND 1DF IN EVENING)
     Route: 048
     Dates: start: 20150305

REACTIONS (9)
  - Haemorrhage [Fatal]
  - Anaemia [Fatal]
  - Thrombocytopenia [Fatal]
  - Epistaxis [Unknown]
  - Splenomegaly [Fatal]
  - Chronic myeloid leukaemia [Fatal]
  - Platelet count decreased [Unknown]
  - Haemoglobin decreased [Fatal]
  - Malignant neoplasm progression [Fatal]
